FAERS Safety Report 5409295-9 (Version None)
Quarter: 2007Q3

REPORT INFORMATION
  Report Type: 
  Country: None (occurrence: None)
  Receive Date: 20070807
  Receipt Date: 20070807
  Transmission Date: 20080115
  Serious: No
  Sender: FDA-Public Use
  Company Number: None

PATIENT
  Age: 38 Year
  Sex: Male
  Weight: 70.3075 kg

DRUGS (1)
  1. GADOLITE [Suspect]
     Indication: NUCLEAR MAGNETIC RESONANCE IMAGING
     Dosage: 2XYEAR
     Dates: start: 20030101, end: 20051220

REACTIONS (3)
  - MOBILITY DECREASED [None]
  - SKIN DISORDER [None]
  - SKIN LESION [None]
